FAERS Safety Report 7042020-7 (Version None)
Quarter: 2010Q4

REPORT INFORMATION
  Report Type: 
  Country: None (occurrence: None)
  Receive Date: 20101013
  Receipt Date: 20100330
  Transmission Date: 20110411
  Serious: No
  Sender: FDA-Public Use
  Company Number: US-ASTRAZENECA-2010SE11593

PATIENT
  Sex: Female
  Weight: 90.7 kg

DRUGS (3)
  1. SYMBICORT [Suspect]
     Indication: DYSPNOEA
     Dosage: 160/4.5 UG 2 PUFFS 2 TIMES A DAY
     Route: 055
     Dates: start: 20100101
  2. PROPRANOLOL [Concomitant]
  3. OTC HEARTBURN [Concomitant]

REACTIONS (4)
  - HAEMOPTYSIS [None]
  - ORAL DISCOMFORT [None]
  - PNEUMONIA [None]
  - RETCHING [None]
